FAERS Safety Report 7685088-7 (Version None)
Quarter: 2011Q3

REPORT INFORMATION
  Report Type: 
  Country: None (occurrence: None)
  Receive Date: 20110816
  Receipt Date: 20110805
  Transmission Date: 20111222
  Serious: Yes (Death)
  Sender: FDA-Public Use
  Company Number: US-JNJFOC-20110806116

PATIENT

DRUGS (1)
  1. TRAMADOL HCL [Suspect]
     Indication: DRUG ABUSE
     Route: 065

REACTIONS (2)
  - TOXICITY TO VARIOUS AGENTS [None]
  - DRUG ABUSE [None]
